FAERS Safety Report 9808758 (Version 10)
Quarter: 2015Q1

REPORT INFORMATION
  Report Type: Spontaneous
  Country: US (occurrence: US)
  Receive Date: 20140110
  Receipt Date: 20150226
  Transmission Date: 20150721
  Serious: Yes (Disabling)
  Sender: FDA-Public Use
  Company Number: US-009507513-1109USA02509

PATIENT
  Sex: Male
  Weight: 73.47 kg

DRUGS (4)
  1. FINASTERIDE. [Suspect]
     Active Substance: FINASTERIDE
     Indication: ALOPECIA
     Route: 048
  2. PROPECIA [Suspect]
     Active Substance: FINASTERIDE
     Indication: ALOPECIA
  3. PROPECIA [Suspect]
     Active Substance: FINASTERIDE
     Indication: ANDROGENETIC ALOPECIA
     Dosage: 1 MG, QD
     Route: 048
     Dates: start: 20050804, end: 200811
  4. PROSCAR [Suspect]
     Active Substance: FINASTERIDE
     Indication: ANDROGENETIC ALOPECIA
     Dosage: UNK UNK
     Route: 048

REACTIONS (32)
  - Arthralgia [Unknown]
  - Sensory disturbance [Unknown]
  - Drug administration error [Unknown]
  - Feeling abnormal [Unknown]
  - Anxiety [Not Recovered/Not Resolved]
  - Essential tremor [Unknown]
  - Hypertonic bladder [Unknown]
  - Amnesia [Unknown]
  - Haematuria [Unknown]
  - Sexual dysfunction [Not Recovered/Not Resolved]
  - Laceration [Unknown]
  - Disturbance in attention [Unknown]
  - Scrotal angiokeratoma [Unknown]
  - Limb injury [Unknown]
  - Terminal dribbling [Unknown]
  - Anogenital warts [Unknown]
  - Sexual dysfunction [Unknown]
  - Libido decreased [Unknown]
  - Collagen disorder [Unknown]
  - Dandruff [Unknown]
  - Dermal cyst [Unknown]
  - Pain in extremity [Unknown]
  - Cough [Recovered/Resolved]
  - Urticaria [Unknown]
  - Gynaecomastia [Unknown]
  - Emotional distress [Not Recovered/Not Resolved]
  - Tremor [Unknown]
  - Prostatitis [Not Recovered/Not Resolved]
  - Benign prostatic hyperplasia [Unknown]
  - Dihydrotestosterone decreased [Unknown]
  - Drug ineffective [Unknown]
  - Erectile dysfunction [Unknown]

NARRATIVE: CASE EVENT DATE: 2007
